FAERS Safety Report 9795068 (Version 1)
Quarter: 2014Q1

REPORT INFORMATION
  Report Type: Spontaneous
  Country: US (occurrence: US)
  Receive Date: 20140102
  Receipt Date: 20140102
  Transmission Date: 20141002
  Serious: Yes (Other)
  Sender: FDA-Public Use
  Company Number: US-AMGEN-USASP2013091051

PATIENT
  Age: 68 Year
  Sex: Female

DRUGS (6)
  1. PROLIA [Suspect]
     Indication: PRODUCT USED FOR UNKNOWN INDICATION
     Dosage: UNK
     Route: 065
  2. PROPAFENONE [Concomitant]
  3. DILTIAZEM [Concomitant]
  4. PREVACID [Concomitant]
  5. WARFARIN [Concomitant]
  6. ATIVAN [Concomitant]

REACTIONS (13)
  - Tooth infection [Unknown]
  - Oral fungal infection [Not Recovered/Not Resolved]
  - Flushing [Unknown]
  - Sleep disorder due to general medical condition, insomnia type [Unknown]
  - Sinus headache [Unknown]
  - Dry skin [Unknown]
  - Hyperkeratosis [Unknown]
  - Dry mouth [Not Recovered/Not Resolved]
  - Skin hypertrophy [Unknown]
  - Pain of skin [Unknown]
  - Bone density decreased [Unknown]
  - Pain in jaw [Unknown]
  - Bone pain [Unknown]
